FAERS Safety Report 8994478 (Version 1)
Quarter: 2012Q4

REPORT INFORMATION
  Report Type: Spontaneous
  Country: US (occurrence: None)
  Receive Date: 20121228
  Receipt Date: 20121228
  Transmission Date: 20130627
  Serious: Yes (Other)
  Sender: FDA-Public Use
  Company Number: None

PATIENT
  Age: 45 Year
  Sex: Female
  Weight: 54.43 kg

DRUGS (1)
  1. TOPIRAMATE [Suspect]
     Indication: EPILEPSY
     Dosage: 200mg twice daily po
     Route: 048
     Dates: start: 20121127, end: 20121223

REACTIONS (3)
  - Rash generalised [None]
  - Rash pruritic [None]
  - Product substitution issue [None]
